FAERS Safety Report 25369858 (Version 1)
Quarter: 2025Q2

REPORT INFORMATION
  Report Type: Spontaneous
  Country: US (occurrence: US)
  Receive Date: 20250528
  Receipt Date: 20250528
  Transmission Date: 20250717
  Serious: No
  Sender: PFIZER
  Company Number: US-PFIZER INC-PV202500064098

PATIENT
  Age: 71 Year
  Sex: Female

DRUGS (9)
  1. ESTRING [Suspect]
     Active Substance: ESTRADIOL
     Dosage: 7.5 UG, DAILY (7.5 MCG/DAY)
     Route: 067
     Dates: start: 20250311
  2. CARAFATE [Concomitant]
     Active Substance: SUCRALFATE
  3. PREVACID [Concomitant]
     Active Substance: LANSOPRAZOLE
  4. GABAPENTIN [Concomitant]
     Active Substance: GABAPENTIN
  5. LEXAPRO [Concomitant]
     Active Substance: ESCITALOPRAM OXALATE
  6. TRAMADOL [Concomitant]
     Active Substance: TRAMADOL
  7. TOPIRAMATE [Concomitant]
     Active Substance: TOPIRAMATE
  8. SYNTHROID [Concomitant]
     Active Substance: LEVOTHYROXINE SODIUM
  9. LIPITOR [Concomitant]
     Active Substance: ATORVASTATIN CALCIUM

REACTIONS (1)
  - Headache [Recovered/Resolved]

NARRATIVE: CASE EVENT DATE: 20250101
